FAERS Safety Report 9537115 (Version 2)
Quarter: 2014Q1

REPORT INFORMATION
  Report Type: Spontaneous
  Country: PT (occurrence: PT)
  Receive Date: 20130919
  Receipt Date: 20140303
  Transmission Date: 20141002
  Serious: Yes (Death)
  Sender: FDA-Public Use
  Company Number: PT-CELGENEUS-130-50794-12111444

PATIENT
  Sex: 0

DRUGS (2)
  1. VIDAZA [Suspect]
     Indication: ERYTHROLEUKAEMIA
     Dosage: 500 MILLIGRAM/SQ. METER
     Route: 065
  2. RED BLOOD CELLS [Concomitant]
     Indication: ANAEMIA
     Route: 065

REACTIONS (6)
  - Erythroleukaemia [Fatal]
  - Drug ineffective [Unknown]
  - Injection site erythema [Unknown]
  - Constipation [Unknown]
  - Neutropenia [Unknown]
  - Thrombocytopenia [Unknown]
